FAERS Safety Report 5730741-5 (Version None)
Quarter: 2008Q2

REPORT INFORMATION
  Report Type: 
  Country: None (occurrence: None)
  Receive Date: 20080507
  Receipt Date: 20080501
  Transmission Date: 20081010
  Serious: Yes (Other)
  Sender: FDA-Public Use
  Company Number: US-ABBOTT-08P-163-0449848-00

PATIENT
  Sex: Female
  Weight: 54.48 kg

DRUGS (6)
  1. HUMIRA [Suspect]
     Indication: RHEUMATOID ARTHRITIS
     Route: 058
     Dates: start: 20040101, end: 20080101
  2. PREMARIN [Concomitant]
     Indication: HYSTERECTOMY
     Route: 048
     Dates: start: 19890101
  3. METHOTREXATE [Concomitant]
     Indication: RHEUMATOID ARTHRITIS
     Dosage: 6 2.5 MG ONCE A WEEK
     Route: 048
     Dates: start: 19970101
  4. FLUOXETINE HYDROCHLORIDE [Concomitant]
     Indication: DEPRESSION
     Route: 048
  5. ALPRAZOLAM [Concomitant]
     Indication: DEPRESSION
     Route: 048
  6. FORINAL [Concomitant]
     Indication: PAIN
     Route: 048

REACTIONS (3)
  - ARTHRALGIA [None]
  - NECK PAIN [None]
  - SUICIDAL IDEATION [None]
